FAERS Safety Report 14269716 (Version 1)
Quarter: 2017Q4

REPORT INFORMATION
  Report Type: Spontaneous
  Country: DE (occurrence: DE)
  Receive Date: 20171211
  Receipt Date: 20171211
  Transmission Date: 20180321
  Serious: Yes (Other)
  Sender: FDA-Public Use
  Company Number: DE-OTSUKA-2016_006135

PATIENT
  Age: 37 Year
  Sex: Female

DRUGS (4)
  1. FLUPENTIXOL [Concomitant]
     Active Substance: FLUPENTIXOL
     Indication: PRODUCT USED FOR UNKNOWN INDICATION
     Dosage: UNK
     Route: 065
     Dates: start: 201101, end: 201101
  2. ABILIFY [Suspect]
     Active Substance: ARIPIPRAZOLE
     Indication: INJURY
     Dosage: 15 MG, QD
     Route: 065
     Dates: end: 201401
  3. ABILIFY [Suspect]
     Active Substance: ARIPIPRAZOLE
     Indication: SCHIZOAFFECTIVE DISORDER
     Dosage: 10 MG, QD
     Route: 065
     Dates: start: 2009
  4. FLUANXOL [Concomitant]
     Active Substance: FLUPENTIXOL
     Indication: PRODUCT USED FOR UNKNOWN INDICATION
     Dosage: UNK
     Route: 065
     Dates: start: 201101, end: 201101

REACTIONS (4)
  - Cerebral infarction [Unknown]
  - Drug ineffective [Unknown]
  - Dyspnoea [Unknown]
  - Aggression [Unknown]
